FAERS Safety Report 6796263-8 (Version None)
Quarter: 2010Q2

REPORT INFORMATION
  Report Type: 
  Country: None (occurrence: None)
  Receive Date: 20100625
  Receipt Date: 20100617
  Transmission Date: 20101027
  Serious: Yes (Hospitalization, Other)
  Sender: FDA-Public Use
  Company Number: US-ABBOTT-10P-163-0638037-00

PATIENT
  Sex: Female
  Weight: 68.1 kg

DRUGS (4)
  1. SYNTHROID [Suspect]
     Indication: HYPOTHYROIDISM
     Dosage: SAMPLES GIVEN BY MD, MEDS WERE NOT EXPIRED WHEN SHE TOOK THEM.
     Route: 048
     Dates: start: 20090729, end: 20091211
  2. PHENAZOPYRIDINE HCL TAB [Concomitant]
     Indication: DRUG USE FOR UNKNOWN INDICATION
     Route: 048
  3. DIFLUCAN [Concomitant]
     Indication: DRUG USE FOR UNKNOWN INDICATION
     Route: 048
     Dates: start: 20100414, end: 20100415
  4. VAGIFEM [Concomitant]
     Indication: DRUG USE FOR UNKNOWN INDICATION

REACTIONS (31)
  - ANXIETY [None]
  - ATROPHIC VULVOVAGINITIS [None]
  - BACTERIAL INFECTION [None]
  - DIVERTICULITIS [None]
  - DIVERTICULUM [None]
  - DIZZINESS [None]
  - DRUG HYPERSENSITIVITY [None]
  - DRY SKIN [None]
  - DYSURIA [None]
  - ERYTHEMA [None]
  - EYE SWELLING [None]
  - FEELING ABNORMAL [None]
  - INSOMNIA [None]
  - NAUSEA [None]
  - OSTEOARTHRITIS [None]
  - PALPITATIONS [None]
  - POISONING [None]
  - PRURITUS GENERALISED [None]
  - RASH [None]
  - RASH GENERALISED [None]
  - RASH PAPULAR [None]
  - REACTION TO AZO-DYES [None]
  - SKIN BURNING SENSATION [None]
  - SKIN DISCOLOURATION [None]
  - SKIN PAPILLOMA [None]
  - TRIGONITIS [None]
  - URETHRITIS [None]
  - VAGINAL INFECTION [None]
  - VAGINITIS BACTERIAL [None]
  - VULVOVAGINAL BURNING SENSATION [None]
  - VULVOVAGINAL PAIN [None]
